FAERS Safety Report 5926228-7 (Version None)
Quarter: 2008Q4

REPORT INFORMATION
  Report Type: 
  Country: None (occurrence: None)
  Receive Date: 20081022
  Receipt Date: 20081013
  Transmission Date: 20090506
  Serious: Yes (Hospitalization)
  Sender: FDA-Public Use
  Company Number: US-RANBAXY-2008RR-18584

PATIENT
  Age: 46 Year
  Sex: Female
  Weight: 177 kg

DRUGS (17)
  1. GABAPENTIN [Suspect]
     Indication: DIABETIC NEUROPATHY
     Dosage: 300 MG, TID
  2. LISINOPRIL [Concomitant]
     Indication: HYPERTENSION
     Dosage: 40 MG, QD
  3. HYDROCHLOROTHIAZIDE [Concomitant]
     Indication: HYPERTENSION
     Dosage: 25 MG, QD
  4. FUROSEMIDE [Concomitant]
     Indication: HYPERTENSION
     Dosage: 80 MG, QD
  5. ATORVASTATIN CALCIUM [Concomitant]
     Indication: HYPERLIPIDAEMIA
     Dosage: 10 MG, QD
  6. OMEPRAZOLE [Concomitant]
     Indication: GASTROOESOPHAGEAL REFLUX DISEASE
     Dosage: 20 MG, QD
  7. SALMETEROL/FLUTICASONE PROPIONATE [Concomitant]
     Indication: ASTHMA
  8. SALBUTAMOL [Concomitant]
     Indication: ASTHMA
  9. METFORMIN HYDROCHLORIDE [Concomitant]
     Indication: TYPE 2 DIABETES MELLITUS
     Dosage: 500 MG, BID
  10. INSULIN LISPRO [Concomitant]
     Indication: TYPE 2 DIABETES MELLITUS
  11. OXYCODONE HCL [Concomitant]
     Indication: OSTEOARTHRITIS
     Dosage: 60 MG, TID
  12. OXYCODONE HCL [Concomitant]
     Indication: BACK PAIN
  13. VENLAFAXINE HCL [Concomitant]
     Indication: DEPRESSION
     Dosage: 150 MG, BID
  14. ALPRAZOLAM [Concomitant]
     Indication: ANXIETY DISORDER
     Dosage: 0.5 MG, TID
  15. MOXIFLOXACIN HCL [Concomitant]
     Indication: PNEUMONIA
     Dosage: 400 MG, QD
     Route: 042
  16. MOXIFLOXACIN HCL [Concomitant]
     Indication: URINARY TRACT INFECTION
     Dosage: 400 MG, UNK
     Route: 048
  17. ALBUTEROL [Suspect]
     Indication: ASTHMA
     Dosage: 90 UG, PRN

REACTIONS (5)
  - CONFUSIONAL STATE [None]
  - DEAFNESS [None]
  - DRUG LEVEL INCREASED [None]
  - HALLUCINATION [None]
  - MYOCLONUS [None]
